FAERS Safety Report 4347636-4 (Version None)
Quarter: 2004Q2

REPORT INFORMATION
  Report Type: 
  Country: None (occurrence: None)
  Receive Date: 20040422
  Receipt Date: 20040409
  Transmission Date: 20050107
  Serious: Yes (Hospitalization, Other)
  Sender: FDA-Public Use
  Company Number: 2004024568

PATIENT
  Age: 75 Year
  Sex: Female

DRUGS (4)
  1. ZOLOFT [Suspect]
     Indication: PSYCHOTIC DISORDER
     Dosage: UNKNOWN, UNKNOWN
     Dates: start: 20040101, end: 20040101
  2. RISPERDAL [Suspect]
     Indication: PSYCHOTIC DISORDER
     Dosage: UNKNOWN, UNKNOWN
     Dates: start: 20040101, end: 20040101
  3. UNSPECIFIED BLOOD PRESSURE MEDICATION (ANTIHYPERTENSIVES) [Concomitant]
  4. UNSPECIFIED DIABETIC MEDICATION (ANTI-DIABETICS) [Concomitant]

REACTIONS (1)
  - PLATELET COUNT DECREASED [None]
